FAERS Safety Report 12478761 (Version 2)
Quarter: 2016Q2

REPORT INFORMATION
  Report Type: Spontaneous
  Country: AU (occurrence: AU)
  Receive Date: 20160619
  Receipt Date: 20160624
  Transmission Date: 20160815
  Serious: Yes (Other)
  Sender: FDA-Public Use
  Company Number: AU-BEH-2016070243

PATIENT
  Age: 85 Year
  Sex: Female

DRUGS (2)
  1. PRIVIGEN [Suspect]
     Active Substance: HUMAN IMMUNOGLOBULIN G
     Indication: MYASTHENIA GRAVIS
     Dosage: 7 G, QMT
     Route: 042
     Dates: start: 20160608, end: 20160608
  2. PRIVIGEN [Suspect]
     Active Substance: HUMAN IMMUNOGLOBULIN G
     Dosage: 10 G, QMT
     Route: 042
     Dates: start: 20160608, end: 20160608

REACTIONS (5)
  - Oxygen saturation decreased [Unknown]
  - Tachycardia [Unknown]
  - Electrocardiogram ST segment elevation [Unknown]
  - Pyrexia [Unknown]
  - Chills [Unknown]

NARRATIVE: CASE EVENT DATE: 20160608
